FAERS Safety Report 6256374-2 (Version None)
Quarter: 2009Q3

REPORT INFORMATION
  Report Type: 
  Country: None (occurrence: None)
  Receive Date: 20090706
  Receipt Date: 20090623
  Transmission Date: 20100115
  Serious: Yes (Hospitalization)
  Sender: FDA-Public Use
  Company Number: AU-NOVOPROD-288639

PATIENT
  Sex: Male

DRUGS (8)
  1. NOVOLOG [Suspect]
     Indication: TYPE 2 DIABETES MELLITUS
     Dosage: 30 U, QD
     Route: 058
     Dates: start: 20050101
  2. LEVEMIR [Suspect]
     Indication: TYPE 2 DIABETES MELLITUS
     Dosage: 12 U AT NIGHT, QD
     Route: 058
     Dates: start: 20050101
  3. SOMAC [Concomitant]
  4. MAREVAN [Concomitant]
  5. ASPIRIN [Concomitant]
  6. ASPIRIN [Concomitant]
  7. BETALOC                            /00376902/ [Concomitant]
  8. ANSELOL [Concomitant]

REACTIONS (4)
  - BLOOD GLUCOSE INCREASED [None]
  - DRUG INEFFECTIVE [None]
  - HEADACHE [None]
  - MYOCARDIAL INFARCTION [None]
